FAERS Safety Report 21552973 (Version 2)
Quarter: 2022Q4

REPORT INFORMATION
  Report Type: Report from Study
  Country: DO (occurrence: DO)
  Receive Date: 20221104
  Receipt Date: 20221110
  Transmission Date: 20230112
  Serious: Yes (Other)
  Sender: FDA-Public Use
  Company Number: DO-002147023-NVSC2021DO220960

PATIENT
  Sex: Female

DRUGS (1)
  1. KISQALI [Suspect]
     Active Substance: RIBOCICLIB
     Indication: Breast cancer
     Dosage: 600 MG, QD
     Route: 048
     Dates: start: 20200101

REACTIONS (6)
  - Brain neoplasm [Unknown]
  - Visual impairment [Unknown]
  - Influenza [Unknown]
  - Weight increased [Unknown]
  - Therapeutic response unexpected [Recovering/Resolving]
  - Product dose omission issue [Unknown]
